FAERS Safety Report 6807982-9 (Version None)
Quarter: 2010Q2

REPORT INFORMATION
  Report Type: 
  Country: None (occurrence: None)
  Receive Date: 20100629
  Receipt Date: 20090616
  Transmission Date: 20101027
  Serious: No
  Sender: FDA-Public Use
  Company Number: US-PFIZER INC-2009187853

PATIENT
  Sex: Female
  Weight: 73.469 kg

DRUGS (7)
  1. TIKOSYN [Suspect]
     Indication: HEART RATE ABNORMAL
     Dosage: 250 UG, 2X/DAY
     Dates: start: 20090301
  2. TOPROL-XL [Concomitant]
     Dosage: UNK
  3. GLUCOSAMINE [Concomitant]
     Dosage: UNK
  4. LIPITOR [Concomitant]
     Dosage: UNK
  5. SYNTHROID [Concomitant]
     Dosage: UNK
  6. ACETYLSALICYLIC ACID [Concomitant]
     Dosage: UNK
  7. CARDIZEM CD [Concomitant]
     Dosage: UNK

REACTIONS (1)
  - DIARRHOEA [None]
